FAERS Safety Report 21630081 (Version 2)
Quarter: 2023Q1

REPORT INFORMATION
  Report Type: Report from Study
  Country: US (occurrence: US)
  Receive Date: 20221122
  Receipt Date: 20230217
  Transmission Date: 20230418
  Serious: No
  Sender: FDA-Public Use
  Company Number: US-ABBVIE-22K-163-4280140-00

PATIENT
  Sex: Female

DRUGS (3)
  1. HUMIRA [Suspect]
     Active Substance: ADALIMUMAB
     Indication: Hidradenitis
     Dosage: DAY 1?FORM STRENGTH WAS 80 MILLIGRAMS
     Route: 058
  2. HUMIRA [Suspect]
     Active Substance: ADALIMUMAB
     Dosage: DAY 15?FORM STRENGTH WAS 80 MILLIGRAMS
     Route: 058
  3. Pfizer/BioNTech [Concomitant]
     Indication: COVID-19 immunisation
     Dosage: 1 IN ONCE
     Route: 030

REACTIONS (10)
  - Skin discomfort [Unknown]
  - Menstrual discomfort [Unknown]
  - Product prescribing error [Unknown]
  - Off label use [Unknown]
  - Pain of skin [Unknown]
  - Self-consciousness [Unknown]
  - Impaired quality of life [Unknown]
  - Pruritus [Unknown]
  - Nasopharyngitis [Unknown]
  - Hidradenitis [Unknown]

NARRATIVE: CASE EVENT DATE: 20220101
